FAERS Safety Report 9073201 (Version 1)
Quarter: 2013Q1

REPORT INFORMATION
  Report Type: Spontaneous
  Country: US (occurrence: US)
  Receive Date: 20130129
  Receipt Date: 20130129
  Transmission Date: 20140127
  Serious: No
  Sender: FDA-Public Use
  Company Number: US-ABBOTT-12P-163-0919032-00

PATIENT
  Age: 17 None
  Sex: Female
  Weight: 58.11 kg

DRUGS (7)
  1. HUMIRA 40 MG/0.8 ML PEN [Suspect]
     Indication: RHEUMATOID ARTHRITIS
     Route: 058
     Dates: start: 201111
  2. METHOTREXATE [Concomitant]
     Indication: RHEUMATOID ARTHRITIS
  3. PLAQUENIL [Concomitant]
     Indication: RHEUMATOID ARTHRITIS
  4. NABUMETONE [Concomitant]
     Indication: PAIN
  5. NABUMETONE [Concomitant]
     Indication: INFLAMMATION
  6. FOLIC ACID [Concomitant]
     Indication: RHEUMATOID ARTHRITIS
  7. RANITIDINE [Concomitant]
     Indication: ABDOMINAL DISCOMFORT

REACTIONS (6)
  - Injection site injury [Recovered/Resolved]
  - Injection site pain [Not Recovered/Not Resolved]
  - Injection site pain [Not Recovered/Not Resolved]
  - Injection site bruising [Not Recovered/Not Resolved]
  - Sinusitis [Recovered/Resolved]
  - Incorrect dose administered [Recovered/Resolved]
